FAERS Safety Report 8833918 (Version 1)
Quarter: 2012Q4

REPORT INFORMATION
  Report Type: Spontaneous
  Country: US (occurrence: None)
  Receive Date: 20121010
  Receipt Date: 20121010
  Transmission Date: 20130627
  Serious: No
  Sender: FDA-Public Use
  Company Number: None

PATIENT
  Age: 27 Year
  Sex: Male
  Weight: 99.79 kg

DRUGS (1)
  1. CETIRIZINE [Suspect]
     Dosage: 10mg once daily po
     Route: 048
     Dates: start: 20050310, end: 20121007

REACTIONS (5)
  - Pruritus [None]
  - Drug withdrawal syndrome [None]
  - Feeling hot [None]
  - Swelling [None]
  - Discomfort [None]
